FAERS Safety Report 25005501 (Version 1)
Quarter: 2025Q1

REPORT INFORMATION
  Report Type: Spontaneous
  Country: US (occurrence: None)
  Receive Date: 20250224
  Receipt Date: 20250224
  Transmission Date: 20250409
  Serious: Yes (unspecified)
  Sender: FDA-CTU
  Company Number: None

PATIENT
  Age: 23 Year
  Sex: Male
  Weight: 96.75 kg

DRUGS (2)
  1. PANZYGA [Suspect]
     Active Substance: HUMAN IMMUNOGLOBULIN G
     Indication: Immunodeficiency
     Route: 050
     Dates: start: 20250222, end: 20250223
  2. PANZYGA [Suspect]
     Active Substance: HUMAN IMMUNOGLOBULIN G
     Indication: Immunodeficiency
     Route: 050
     Dates: start: 20250222, end: 20250223

REACTIONS (2)
  - Urticaria [None]
  - Pruritus [None]

NARRATIVE: CASE EVENT DATE: 20250222
